FAERS Safety Report 5327562-4 (Version None)
Quarter: 2007Q2

REPORT INFORMATION
  Report Type: 
  Country: None (occurrence: None)
  Receive Date: 20070517
  Receipt Date: 20070112
  Transmission Date: 20071010
  Serious: Yes (Hospitalization)
  Sender: FDA-Public Use
  Company Number: US-JNJFOC-20070103233

PATIENT
  Age: 30 Year
  Sex: Male

DRUGS (1)
  1. TRAMADOL HCL [Suspect]
     Indication: SUICIDE ATTEMPT
     Route: 065

REACTIONS (5)
  - COORDINATION ABNORMAL [None]
  - DYSARTHRIA [None]
  - MIOSIS [None]
  - SUICIDE ATTEMPT [None]
  - TACHYCARDIA [None]
